FAERS Safety Report 22311138 (Version 8)
Quarter: 2025Q1

REPORT INFORMATION
  Report Type: Spontaneous
  Country: US (occurrence: US)
  Receive Date: 20230511
  Receipt Date: 20250225
  Transmission Date: 20250408
  Serious: No
  Sender: PFIZER
  Company Number: US-PFIZER INC-202300124771

PATIENT
  Age: 73 Year
  Sex: Male
  Weight: 90.72 kg

DRUGS (3)
  1. BOSULIF [Suspect]
     Active Substance: BOSUTINIB MONOHYDRATE
     Indication: Chronic myeloid leukaemia
  2. BOSULIF [Suspect]
     Active Substance: BOSUTINIB MONOHYDRATE
  3. BOSULIF [Suspect]
     Active Substance: BOSUTINIB MONOHYDRATE
     Dosage: 400 MG, DAILY (100 MG TABLET, 4 TABLETS EVERY DAY W/ FOOD, SWALLOWING WHOLE)
     Route: 048

REACTIONS (8)
  - Gastrointestinal disorder [Unknown]
  - Bladder disorder [Unknown]
  - Prostatic disorder [Unknown]
  - Pollakiuria [Unknown]
  - Dizziness [Unknown]
  - Abdominal discomfort [Unknown]
  - Platelet count decreased [Unknown]
  - Nausea [Unknown]

NARRATIVE: CASE EVENT DATE: 20240601
